FAERS Safety Report 17073610 (Version 5)
Quarter: 2020Q1

REPORT INFORMATION
  Report Type: Report from Study
  Country: US (occurrence: US)
  Receive Date: 20191126
  Receipt Date: 20200220
  Transmission Date: 20200409
  Serious: Yes (Hospitalization)
  Sender: FDA-Public Use
  Company Number: US-ACTELION-A-US2019-198471

PATIENT
  Age: 43 Year
  Sex: Female
  Weight: 74.83 kg

DRUGS (3)
  1. REMODULIN [Suspect]
     Active Substance: TREPROSTINIL
     Indication: PRODUCT USED FOR UNKNOWN INDICATION
     Route: 065
  2. AMLODIPINE [Concomitant]
     Active Substance: AMLODIPINE BESYLATE
  3. OPSUMIT [Suspect]
     Active Substance: MACITENTAN
     Indication: PULMONARY HYPERTENSION
     Dosage: 10 MG, QD
     Route: 048

REACTIONS (11)
  - Headache [Unknown]
  - Catheter site haemorrhage [Unknown]
  - Application site erythema [Unknown]
  - Device dislocation [Unknown]
  - Neck pain [Unknown]
  - Catheter site infection [Unknown]
  - Liver function test increased [Unknown]
  - Sepsis [Unknown]
  - Catheter site cellulitis [Unknown]
  - Pain [Unknown]
  - Application site irritation [Unknown]

NARRATIVE: CASE EVENT DATE: 20200207
